FAERS Safety Report 5677405-4 (Version None)
Quarter: 2008Q1

REPORT INFORMATION
  Report Type: 
  Country: None (occurrence: None)
  Receive Date: 20080321
  Receipt Date: 20080321
  Transmission Date: 20080703
  Serious: Yes (Life-Threatening, Hospitalization, Disabling, Other)
  Sender: FDA-Public Use
  Company Number: None

PATIENT
  Age: 56 Year
  Sex: Female
  Weight: 71.6683 kg

DRUGS (2)
  1. REMICADE [Suspect]
     Indication: ARTHRITIS
     Dosage: 600 MG.  PER/8WKS.  IV
     Route: 042
     Dates: start: 19980930, end: 20071228
  2. REMICADE [Suspect]
     Indication: CROHN'S DISEASE
     Dosage: 600 MG.  PER/8WKS.  IV
     Route: 042
     Dates: start: 19980930, end: 20071228

REACTIONS (12)
  - ANGINA PECTORIS [None]
  - ASTHENIA [None]
  - BRONCHITIS [None]
  - CHEST PAIN [None]
  - DIZZINESS [None]
  - HEART RATE INCREASED [None]
  - IMMUNE SYSTEM DISORDER [None]
  - PNEUMONIA [None]
  - POISONING [None]
  - PYREXIA [None]
  - RESPIRATORY MONILIASIS [None]
  - THIRST [None]
